FAERS Safety Report 10005108 (Version 1)
Quarter: 2014Q1

REPORT INFORMATION
  Report Type: Spontaneous
  Country: US (occurrence: US)
  Receive Date: 20140312
  Receipt Date: 20140312
  Transmission Date: 20141002
  Serious: Yes (Hospitalization)
  Sender: FDA-Public Use
  Company Number: US-OTSUKA-US-2014-10449

PATIENT
  Age: 23 Year
  Sex: Female

DRUGS (2)
  1. ABILIFY MAINTENA [Suspect]
     Indication: SCHIZOAFFECTIVE DISORDER
     Dosage: 400 MG MILLIGRAM(S), Q4WKS
     Route: 030
     Dates: start: 20130613
  2. DEPAKOTE ER [Concomitant]
     Indication: SCHIZOAFFECTIVE DISORDER
     Dosage: 2000 MG MILLIGRAM(S), HS
     Route: 048
     Dates: start: 201206

REACTIONS (4)
  - Schizoaffective disorder [Recovered/Resolved]
  - Suicidal ideation [Recovered/Resolved]
  - Drug dose omission [Recovered/Resolved]
  - Off label use [Unknown]
